FAERS Safety Report 20698102 (Version 2)
Quarter: 2025Q2

REPORT INFORMATION
  Report Type: Spontaneous
  Country: US (occurrence: US)
  Receive Date: 20220412
  Receipt Date: 20250609
  Transmission Date: 20250716
  Serious: Yes (Other)
  Sender: AUROBINDO
  Company Number: US-AUROBINDO-AUR-APL-2022-011631

PATIENT
  Age: 14 Year
  Sex: Female

DRUGS (11)
  1. BUPROPION HYDROCHLORIDE [Suspect]
     Active Substance: BUPROPION HYDROCHLORIDE
     Indication: Major depression
     Route: 065
  2. LEVETIRACETAM [Suspect]
     Active Substance: LEVETIRACETAM
     Indication: Epilepsy
     Route: 065
  3. TRAZODONE [Suspect]
     Active Substance: TRAZODONE HYDROCHLORIDE
     Indication: Major depression
     Route: 065
  4. INSULIN NOS [Suspect]
     Active Substance: INSULIN NOS
     Indication: Product used for unknown indication
     Route: 065
  5. MAGNESIUM SULFATE [Suspect]
     Active Substance: MAGNESIUM SULFATE
     Indication: Product used for unknown indication
     Route: 065
  6. PROPOFOL [Suspect]
     Active Substance: PROPOFOL
     Indication: Product used for unknown indication
     Route: 065
  7. ARIPIPRAZOLE [Concomitant]
     Active Substance: ARIPIPRAZOLE
     Indication: Product used for unknown indication
     Route: 065
  8. CALCIUM CHLORIDE [Concomitant]
     Active Substance: CALCIUM CHLORIDE
     Indication: Product used for unknown indication
     Route: 065
  9. MAGNESIUM [Concomitant]
     Active Substance: MAGNESIUM
     Indication: Product used for unknown indication
     Route: 065
  10. SODIUM BICARBONATE [Concomitant]
     Active Substance: SODIUM BICARBONATE
     Indication: Product used for unknown indication
     Route: 065
  11. LIDOCAINE [Concomitant]
     Active Substance: LIDOCAINE
     Indication: Product used for unknown indication
     Route: 065

REACTIONS (10)
  - Cardiotoxicity [Unknown]
  - Intentional overdose [Unknown]
  - Generalised tonic-clonic seizure [Unknown]
  - Epilepsy [Unknown]
  - Drug ineffective [Unknown]
  - Ventricular tachycardia [Unknown]
  - Arrhythmia [Unknown]
  - Ventricular fibrillation [Unknown]
  - Abdominal discomfort [Unknown]
  - Agitation [Unknown]
